FAERS Safety Report 18318119 (Version 1)
Quarter: 2020Q3

REPORT INFORMATION
  Report Type: Spontaneous
  Country: US (occurrence: US)
  Receive Date: 20200925
  Receipt Date: 20200925
  Transmission Date: 20201103
  Serious: No
  Sender: FDA-Public Use
  Company Number: None

PATIENT
  Age: 72 Year
  Sex: Female
  Weight: 61.65 kg

DRUGS (20)
  1. ALBUTEROL. [Concomitant]
     Active Substance: ALBUTEROL
  2. IMATINIB. [Suspect]
     Active Substance: IMATINIB MESYLATE
     Indication: CHRONIC MYELOID LEUKAEMIA
     Route: 048
     Dates: start: 20200901
  3. FLOVENT DISKUS [Concomitant]
     Active Substance: FLUTICASONE PROPIONATE
  4. FUROSEMIDE. [Concomitant]
     Active Substance: FUROSEMIDE
  5. MELATONIN [Concomitant]
     Active Substance: MELATONIN
  6. METOPROLOL. [Concomitant]
     Active Substance: METOPROLOL
  7. IPRATROPIUM [Concomitant]
     Active Substance: IPRATROPIUM
  8. OMEPRAZOLE. [Concomitant]
     Active Substance: OMEPRAZOLE
  9. ALLOPURINOL. [Concomitant]
     Active Substance: ALLOPURINOL
  10. HYDROXYUREA. [Concomitant]
     Active Substance: HYDROXYUREA
  11. VITAMIN D2 [Concomitant]
     Active Substance: ERGOCALCIFEROL
  12. GUAIFENESIN. [Concomitant]
     Active Substance: GUAIFENESIN
  13. FIBER [Concomitant]
     Active Substance: PSYLLIUM HUSK
  14. DILTIAZEM CD [Concomitant]
     Active Substance: DILTIAZEM
  15. ADVAIR DISKUS [Concomitant]
     Active Substance: FLUTICASONE PROPIONATE\SALMETEROL XINAFOATE
  16. AZITHROMYCIN ANHYDROUS. [Concomitant]
     Active Substance: AZITHROMYCIN ANHYDROUS
  17. ATORVASTATIN [Concomitant]
     Active Substance: ATORVASTATIN
  18. MONTELUKAST [Concomitant]
     Active Substance: MONTELUKAST SODIUM
  19. PREDNISONE. [Concomitant]
     Active Substance: PREDNISONE
  20. PROAIR HFA [Concomitant]
     Active Substance: ALBUTEROL SULFATE

REACTIONS (2)
  - Platelet count decreased [None]
  - Therapy interrupted [None]

NARRATIVE: CASE EVENT DATE: 20200903
